FAERS Safety Report 4666391-1 (Version None)
Quarter: 2005Q2

REPORT INFORMATION
  Report Type: 
  Country: None (occurrence: None)
  Receive Date: 20050519
  Receipt Date: 20050215
  Transmission Date: 20051028
  Serious: Yes (Other)
  Sender: FDA-Public Use
  Company Number: 2005AP01173

PATIENT
  Age: 79 Year
  Sex: Male

DRUGS (7)
  1. MEROPEN [Suspect]
     Indication: SEPSIS
     Route: 041
     Dates: start: 20041227, end: 20050102
  2. GLUCOSE [Concomitant]
     Indication: HEPATIC FUNCTION ABNORMAL
     Route: 041
     Dates: start: 20041210
  3. GLUCAGON G [Concomitant]
     Indication: HEPATIC FUNCTION ABNORMAL
     Route: 041
     Dates: start: 20041210
  4. HUMULIN R [Concomitant]
     Indication: HEPATIC FUNCTION ABNORMAL
     Route: 041
     Dates: start: 20041210
  5. LASIX [Concomitant]
     Indication: ASCITES
     Route: 042
     Dates: start: 20041214
  6. SOLDACTONE [Concomitant]
     Indication: ASCITES
     Route: 042
     Dates: start: 20041214
  7. PENTCILLIN [Concomitant]
     Indication: SEPSIS
     Route: 042
     Dates: start: 20041226, end: 20041226

REACTIONS (1)
  - INTERSTITIAL LUNG DISEASE [None]
